FAERS Safety Report 4418009-0 (Version None)
Quarter: 2004Q3

REPORT INFORMATION
  Report Type: 
  Country: None (occurrence: None)
  Receive Date: 20040804
  Receipt Date: 20040714
  Transmission Date: 20050211
  Serious: Yes (Disabling)
  Sender: FDA-Public Use
  Company Number: 2004-BP-04723NB

PATIENT
  Age: 50 Year
  Sex: Female

DRUGS (4)
  1. MEXITIL CAPSULES (MEXILETINE HYDROCHLORIDE) (KA) [Suspect]
     Indication: VENTRICULAR EXTRASYSTOLES
     Dosage: 300 MG (100 MG)
     Route: 048
     Dates: start: 20040523, end: 20040526
  2. RIZE (CLOTIAZEPAM) [Suspect]
     Indication: AUTONOMIC NERVOUS SYSTEM IMBALANCE
     Dosage: 10 MG
     Route: 048
     Dates: start: 19910827
  3. LUDIOMIL [Suspect]
     Indication: AUTONOMIC NERVOUS SYSTEM IMBALANCE
     Dosage: 20 MG
     Route: 047
     Dates: start: 19910827
  4. ALMARL (AROTINOL HYDROCHLORIDE) [Concomitant]

REACTIONS (1)
  - DEPERSONALISATION [None]
